FAERS Safety Report 7480978-2 (Version None)
Quarter: 2011Q2

REPORT INFORMATION
  Report Type: 
  Country: None (occurrence: None)
  Receive Date: 20110516
  Receipt Date: 20110502
  Transmission Date: 20111010
  Serious: Yes (Hospitalization, Other)
  Sender: FDA-Public Use
  Company Number: US-CELGENEUS-163-21880-11041758

PATIENT
  Sex: Male

DRUGS (13)
  1. CIPRO [Concomitant]
  2. TEMAZ [Concomitant]
     Dosage: 50 MILLIGRAM
     Route: 065
  3. RYTHMOL [Concomitant]
     Route: 065
     Dates: start: 20101201
  4. CELEXA [Concomitant]
     Dosage: 20 MILLIGRAM
     Route: 065
  5. INSULIN [Concomitant]
     Route: 065
  6. PERCOCET [Concomitant]
     Route: 065
  7. REVLIMID [Suspect]
     Indication: MULTIPLE MYELOMA
     Dosage: 10 MILLIGRAM
     Route: 048
     Dates: start: 20100816
  8. REVLIMID [Suspect]
     Dosage: 10 MILLIGRAM
     Route: 048
     Dates: start: 20101201
  9. DEXAMETHASONE [Concomitant]
     Dosage: 4 MILLIGRAM
     Route: 065
  10. MULTI-VITAMINS [Concomitant]
     Route: 065
  11. COMPAZINE [Concomitant]
     Dosage: 10 MILLIGRAM
     Route: 065
  12. CIPRO [Concomitant]
     Route: 065
     Dates: start: 20101201
  13. ASPIRIN [Concomitant]
     Indication: PROPHYLAXIS
     Route: 065

REACTIONS (4)
  - NEUROPATHY PERIPHERAL [None]
  - PANCYTOPENIA [None]
  - VENOUS STENOSIS [None]
  - ATRIAL FIBRILLATION [None]
